FAERS Safety Report 16185319 (Version 1)
Quarter: 2019Q2

REPORT INFORMATION
  Report Type: Spontaneous
  Country: US (occurrence: US)
  Receive Date: 20190308
  Receipt Date: 20190308
  Transmission Date: 20190711
  Serious: No
  Sender: FDA-Public Use
  Company Number: None

PATIENT

DRUGS (1)
  1. CYCLOSPORINE MODIFIED [Suspect]
     Active Substance: CYCLOSPORINE
     Route: 048
     Dates: start: 20190207

REACTIONS (3)
  - Myalgia [None]
  - Muscle spasms [None]
  - Blood pressure increased [None]

NARRATIVE: CASE EVENT DATE: 20190308
